FAERS Safety Report 4960544-0 (Version None)
Quarter: 2006Q1

REPORT INFORMATION
  Report Type: 
  Country: None (occurrence: None)
  Receive Date: 20060331
  Receipt Date: 20060331
  Transmission Date: 20060701
  Serious: Yes (Hospitalization)
  Sender: FDA-Public Use
  Company Number: None

PATIENT
  Age: 80 Year
  Sex: Male
  Weight: 77 kg

DRUGS (10)
  1. GLYBURIDE [Suspect]
     Indication: DIABETES MELLITUS
     Dosage: 5 MG   BID   PO
     Route: 048
  2. TYLENOL (CAPLET) [Concomitant]
  3. FOSINOPRIL [Concomitant]
  4. MULTI-VITAMIN [Concomitant]
  5. METOPROLOL [Concomitant]
  6. SIMVASTATIN [Concomitant]
  7. TERAZOCIN [Concomitant]
  8. FUROSEMIDE [Concomitant]
  9. POTASSIUM CHLORIDE [Concomitant]
  10. GUAIFENESIN [Concomitant]

REACTIONS (9)
  - ASTHENIA [None]
  - BLOOD GLUCOSE DECREASED [None]
  - COLD SWEAT [None]
  - DYSARTHRIA [None]
  - FALL [None]
  - FEELING HOT AND COLD [None]
  - HYPERHIDROSIS [None]
  - NERVOUSNESS [None]
  - SOMNOLENCE [None]
